FAERS Safety Report 9788256 (Version 2)
Quarter: 2014Q1

REPORT INFORMATION
  Report Type: Report from Study
  Country: AU (occurrence: AU)
  Receive Date: 20131230
  Receipt Date: 20140107
  Transmission Date: 20141002
  Serious: Yes (Hospitalization)
  Sender: FDA-Public Use
  Company Number: PHHY2013AU148671

PATIENT
  Sex: Male

DRUGS (14)
  1. CLOZARIL [Suspect]
     Dosage: 100 MG, QD
     Dates: start: 20070220
  2. CLOZARIL [Suspect]
     Dosage: 600 MG, QD
  3. CLOZARIL [Suspect]
     Dosage: 225 MG, QD
     Dates: end: 20131122
  4. SODIUM VALPROATE [Concomitant]
     Dosage: 1500 MG, UNK (500 MG MANE/ 1000 MG NOCTE)
  5. ARIPIPRAZOLE [Concomitant]
     Dosage: 45 MG, QD
  6. ARIPIPRAZOLE [Concomitant]
     Dosage: 30 MG, MANE
  7. CITALOPRAM [Concomitant]
     Dosage: 10 MG, NOCTE
  8. BENZTROPINE [Concomitant]
     Dosage: 1 MG, BID
  9. OLANZAPINE [Concomitant]
     Dosage: 10 MG, BID
  10. OLANZAPINE [Concomitant]
     Dosage: 5 MG, TID,PRN
  11. HALOPERIDOL [Concomitant]
     Dosage: 5 MG, TID (IMI PREPERATIONS PRN)
     Route: 048
  12. LORAZEPAM [Concomitant]
     Dosage: 2 MG, TID (IMI PREPARATIONS PRN)
     Route: 048
  13. CLONAZEPAM [Concomitant]
     Dosage: 2 MG, TID
  14. ZUCLOPENTHIXOL ACETATE [Concomitant]
     Dosage: 100 MG, UNK (3 DOSES OVER 4 DAYS)
     Route: 030

REACTIONS (3)
  - Acute psychosis [Not Recovered/Not Resolved]
  - Mental impairment [Not Recovered/Not Resolved]
  - Delusion [Not Recovered/Not Resolved]
